FAERS Safety Report 6257017-4 (Version None)
Quarter: 2009Q3

REPORT INFORMATION
  Report Type: 
  Country: None (occurrence: None)
  Receive Date: 20090706
  Receipt Date: 20090629
  Transmission Date: 20100115
  Serious: Yes (Other)
  Sender: FDA-Public Use
  Company Number: A0785721A

PATIENT
  Sex: Male

DRUGS (9)
  1. PAXIL [Suspect]
     Indication: ANXIETY
     Dosage: 20MG TWICE PER DAY
     Route: 065
     Dates: start: 20061101, end: 20061201
  2. TRAZODONE HCL [Suspect]
     Indication: DRUG USE FOR UNKNOWN INDICATION
     Route: 065
  3. DESYREL [Concomitant]
     Indication: INSOMNIA
     Dosage: 16MG PER DAY
     Route: 065
     Dates: start: 20060501
  4. ATIVAN [Concomitant]
     Indication: ANXIETY
     Dosage: 1MG AS REQUIRED
     Route: 065
     Dates: start: 20010101
  5. ZOCOR [Concomitant]
     Dosage: 40MG AT NIGHT
     Route: 065
     Dates: start: 20030101
  6. ATACAND [Concomitant]
     Indication: HYPERTENSION
     Dosage: 16MG PER DAY
     Route: 065
     Dates: start: 20020101
  7. SINEMET [Concomitant]
     Indication: DRUG USE FOR UNKNOWN INDICATION
     Route: 065
  8. AZILECT [Concomitant]
     Indication: DRUG USE FOR UNKNOWN INDICATION
     Route: 065
  9. MIRAPEX [Concomitant]
     Indication: DRUG USE FOR UNKNOWN INDICATION
     Route: 065

REACTIONS (4)
  - MOVEMENT DISORDER [None]
  - MUSCLE RIGIDITY [None]
  - PARKINSON'S DISEASE [None]
  - TREMOR [None]
